FAERS Safety Report 21768743 (Version 1)
Quarter: 2022Q4

REPORT INFORMATION
  Report Type: Spontaneous
  Country: US (occurrence: None)
  Receive Date: 20221222
  Receipt Date: 20221222
  Transmission Date: 20230113
  Serious: No
  Sender: FDA-Public Use
  Company Number: None

PATIENT
  Sex: Female

DRUGS (1)
  1. AMBRISENTAN [Suspect]
     Active Substance: AMBRISENTAN
     Indication: Pulmonary arterial hypertension
     Dosage: 10MG DAILY ORAL
     Route: 048
     Dates: start: 20190511

REACTIONS (6)
  - Fatigue [None]
  - Facial paralysis [None]
  - Hypoaesthesia [None]
  - Hypoaesthesia [None]
  - Pregnancy [None]
  - Exposure during pregnancy [None]
